FAERS Safety Report 9123231 (Version 1)
Quarter: 2013Q1

REPORT INFORMATION
  Report Type: Spontaneous
  Country: GB (occurrence: None)
  Receive Date: 20130129
  Receipt Date: 20130129
  Transmission Date: 20140127
  Serious: Yes (Hospitalization)
  Sender: FDA-Public Use
  Company Number: 144402

PATIENT
  Age: 62 Year
  Sex: Male

DRUGS (2)
  1. CARBOPLATIN [Suspect]
     Indication: SMALL CELL LUNG CANCER
     Dosage: UNKNOWN / IV ON DAY 1?UNKNOWN
     Route: 042
  2. ETOPOSIDE [Suspect]
     Indication: SMALL CELL LUNG CANCER
     Dosage: UNKNOWN
     Route: 042

REACTIONS (10)
  - Small intestinal obstruction [None]
  - Gastrointestinal oedema [None]
  - Small intestine ulcer [None]
  - Gastrointestinal necrosis [None]
  - Small intestinal haemorrhage [None]
  - Purulence [None]
  - Metastases to thorax [None]
  - Abdominal pain [None]
  - Vomiting [None]
  - Intestinal dilatation [None]
